FAERS Safety Report 11395472 (Version 2)
Quarter: 2015Q3

REPORT INFORMATION
  Report Type: Report from Study
  Country: US (occurrence: US)
  Receive Date: 20150819
  Receipt Date: 20150916
  Transmission Date: 20151125
  Serious: Yes (Hospitalization)
  Sender: FDA-Public Use
  Company Number: US-ASTRAZENECA-2015SE40916

PATIENT
  Age: 74 Year
  Sex: Male
  Weight: 64 kg

DRUGS (10)
  1. METAPROLOL [Concomitant]
     Indication: CARDIAC DISORDER
     Route: 048
     Dates: start: 201501
  2. LASIX [Concomitant]
     Active Substance: FUROSEMIDE
     Route: 048
     Dates: start: 201504
  3. ENALAPRIL [Concomitant]
     Active Substance: ENALAPRIL
     Indication: ILL-DEFINED DISORDER
     Dates: start: 201504
  4. PULMICORT FLEXHALER [Suspect]
     Active Substance: BUDESONIDE
     Indication: ASTHMA
     Dosage: 1 PUFF TWICE DAILY
     Route: 055
     Dates: start: 201504
  5. SINGULAIR [Concomitant]
     Active Substance: MONTELUKAST SODIUM
     Indication: ASTHMA
     Route: 048
     Dates: start: 201504
  6. SPIRIVA [Concomitant]
     Active Substance: TIOTROPIUM BROMIDE MONOHYDRATE
     Indication: CHRONIC OBSTRUCTIVE PULMONARY DISEASE
     Dosage: DAILY
     Route: 055
     Dates: start: 201504
  7. PAXIL [Concomitant]
     Active Substance: PAROXETINE HYDROCHLORIDE
     Route: 048
     Dates: start: 201505
  8. BRILINTA [Suspect]
     Active Substance: TICAGRELOR
     Indication: ANTICOAGULANT THERAPY
     Route: 048
     Dates: start: 201409
  9. ASPIRIN. [Concomitant]
     Active Substance: ASPIRIN
     Route: 048
     Dates: start: 201409
  10. BRILINTA [Suspect]
     Active Substance: TICAGRELOR
     Indication: ACUTE CORONARY SYNDROME
     Route: 048
     Dates: start: 201409

REACTIONS (9)
  - Intentional product misuse [Unknown]
  - Drug dose omission [Unknown]
  - Device malfunction [Unknown]
  - Somnolence [Unknown]
  - Hypoacusis [Unknown]
  - Haemoglobin decreased [Recovering/Resolving]
  - Haemorrhage [Recovering/Resolving]
  - Dehydration [Unknown]
  - Fatigue [Unknown]

NARRATIVE: CASE EVENT DATE: 2015
